FAERS Safety Report 23747997 (Version 1)
Quarter: 2024Q2

REPORT INFORMATION
  Report Type: Report from Study
  Country: US (occurrence: US)
  Receive Date: 20240416
  Receipt Date: 20240416
  Transmission Date: 20240715
  Serious: Yes (Other)
  Sender: FDA-Public Use
  Company Number: US-OTSUKA-2024_007713

PATIENT
  Age: 42 Year
  Sex: Female
  Weight: 77.11 kg

DRUGS (4)
  1. TOLVAPTAN [Suspect]
     Active Substance: TOLVAPTAN
     Indication: Congenital cystic kidney disease
     Dosage: 45 MG, QD (EVERY MORNING)
     Route: 048
     Dates: start: 20240302
  2. TOLVAPTAN [Suspect]
     Active Substance: TOLVAPTAN
     Dosage: 15 MG, QD (8 HOUR LATER)
     Route: 048
     Dates: start: 20240302
  3. LOSARTAN [Concomitant]
     Active Substance: LOSARTAN
     Indication: Product used for unknown indication
     Dosage: 1 DF, QD
     Route: 048
  4. TRAMADOL [Concomitant]
     Active Substance: TRAMADOL\TRAMADOL HYDROCHLORIDE
     Indication: Back pain
     Dosage: 1 DF (EVERY SIX HOURS AS NEEDED)
     Route: 048

REACTIONS (7)
  - Renal transplant [Unknown]
  - Blood pressure increased [Unknown]
  - Abdominal distension [Unknown]
  - Nocturia [Unknown]
  - Dry mouth [Unknown]
  - Polydipsia [Unknown]
  - Thirst [Unknown]

NARRATIVE: CASE EVENT DATE: 20240302
